FAERS Safety Report 6680695-2 (Version None)
Quarter: 2010Q2

REPORT INFORMATION
  Report Type: 
  Country: None (occurrence: None)
  Receive Date: 20100414
  Receipt Date: 20100412
  Transmission Date: 20101027
  Serious: Yes (Hospitalization)
  Sender: FDA-Public Use
  Company Number: DE-WYE-G05936610

PATIENT
  Sex: Male
  Weight: 75 kg

DRUGS (3)
  1. TREVILOR RETARD [Suspect]
     Dosage: MAX. 5 CAPSULES (MAX. OVERDOSE AMOUNT 750 MG)
     Route: 048
     Dates: start: 20100412, end: 20100412
  2. MIRTAZAPINE [Suspect]
     Dosage: MAX. 30 TABLETS (MAX. OVERDOSE AMOUNT 1350 MG)
     Route: 048
     Dates: start: 20100412, end: 20100412
  3. ALCOHOL [Suspect]
     Dosage: UNKNOWN OVERDOSE AMOUNT
     Route: 048
     Dates: start: 20100412, end: 20100412

REACTIONS (3)
  - AGGRESSION [None]
  - INTENTIONAL OVERDOSE [None]
  - SUICIDE ATTEMPT [None]
